FAERS Safety Report 18057992 (Version 1)
Quarter: 2020Q3

REPORT INFORMATION
  Report Type: Spontaneous
  Country: US (occurrence: US)
  Receive Date: 20200723
  Receipt Date: 20200723
  Transmission Date: 20201103
  Serious: Yes (Other)
  Sender: FDA-Public Use
  Company Number: US-AUROBINDO-AUR-APL-2020-035801

PATIENT
  Sex: Male

DRUGS (3)
  1. NALTREXONE [Suspect]
     Active Substance: NALTREXONE
     Indication: DIARRHOEA
  2. LOPERAMIDE [Suspect]
     Active Substance: LOPERAMIDE
     Indication: DIARRHOEA
     Dosage: UNK
     Route: 065
  3. NALTREXONE [Suspect]
     Active Substance: NALTREXONE
     Indication: PSORIASIS
     Dosage: 4.5 MILLIGRAM, ONCE A DAY (LOW?DOSE)
     Route: 048

REACTIONS (5)
  - Gastrointestinal disorder [Recovered/Resolved]
  - Drug ineffective [Recovered/Resolved]
  - Off label use [Recovered/Resolved]
  - Psoriatic arthropathy [Recovered/Resolved]
  - Psoriasis [Recovered/Resolved]
